FAERS Safety Report 5898946-0 (Version None)
Quarter: 2008Q3

REPORT INFORMATION
  Report Type: 
  Country: None (occurrence: None)
  Receive Date: 20080925
  Receipt Date: 20080917
  Transmission Date: 20090109
  Serious: Yes (Other)
  Sender: FDA-Public Use
  Company Number: AU-PFIZER INC-2008078815

PATIENT
  Age: 72 Year
  Sex: Female

DRUGS (2)
  1. LIPITOR [Suspect]
  2. ALL OTHER THERAPEUTIC PRODUCTS [Concomitant]

REACTIONS (1)
  - ARTERIAL OCCLUSIVE DISEASE [None]
